FAERS Safety Report 12463409 (Version 5)
Quarter: 2016Q2

REPORT INFORMATION
  Report Type: Spontaneous
  Country: JP (occurrence: JP)
  Receive Date: 20160614
  Receipt Date: 20160628
  Transmission Date: 20160815
  Serious: Yes (Hospitalization)
  Sender: FDA-Public Use
  Company Number: JP-ABBVIE-16K-087-1649398-00

PATIENT
  Age: 40 Year
  Sex: Female

DRUGS (1)
  1. HUMIRA [Suspect]
     Active Substance: ADALIMUMAB
     Indication: ARTHRITIS
     Route: 058
     Dates: start: 20150321, end: 20160518

REACTIONS (4)
  - Asthenia [Unknown]
  - Drug-induced liver injury [Unknown]
  - Jaundice [Unknown]
  - Hepatic infiltration eosinophilic [Unknown]

NARRATIVE: CASE EVENT DATE: 20160518
